FAERS Safety Report 6358475-7 (Version None)
Quarter: 2009Q3

REPORT INFORMATION
  Report Type: 
  Country: None (occurrence: None)
  Receive Date: 20090916
  Receipt Date: 20090216
  Transmission Date: 20100115
  Serious: No
  Sender: FDA-Public Use
  Company Number: US-AMGEN-KDL334028

PATIENT
  Sex: Male

DRUGS (5)
  1. NEUPOGEN [Suspect]
     Indication: CHEMOTHERAPY
  2. CISPLATIN [Concomitant]
     Dates: start: 20090204
  3. ETOPOSIDE [Concomitant]
     Dates: start: 20090204
  4. IFOSFAMIDE [Concomitant]
     Dates: start: 20090204
  5. MESNA [Concomitant]
     Dates: start: 20090204

REACTIONS (1)
  - THERAPEUTIC RESPONSE DECREASED [None]
